FAERS Safety Report 7633370-1 (Version None)
Quarter: 2011Q3

REPORT INFORMATION
  Report Type: 
  Country: None (occurrence: None)
  Receive Date: 20110725
  Receipt Date: 20101018
  Transmission Date: 20111222
  Serious: No
  Sender: FDA-Public Use
  Company Number: US-BRISTOL-MYERS SQUIBB COMPANY-15338718

PATIENT
  Age: 70 Year
  Sex: Male
  Weight: 66 kg

DRUGS (8)
  1. NICARDIPINE HCL [Concomitant]
     Dosage: 2 DF:2 TABS
  2. MULTI-VITAMIN [Concomitant]
  3. COUMADIN [Concomitant]
  4. FISH OIL [Concomitant]
  5. SPRYCEL [Suspect]
     Dates: start: 20101014
  6. COREG [Concomitant]
  7. FLOMAX [Concomitant]
  8. VITAMIN D [Concomitant]

REACTIONS (2)
  - PYREXIA [None]
  - HEADACHE [None]
